FAERS Safety Report 17457530 (Version 2)
Quarter: 2020Q1

REPORT INFORMATION
  Report Type: Spontaneous
  Country: US (occurrence: US)
  Receive Date: 20200225
  Receipt Date: 20200309
  Transmission Date: 20200409
  Serious: No
  Sender: FDA-Public Use
  Company Number: US-ASTRAZENECA-2020SE24143

PATIENT
  Age: 398 Day
  Sex: Male

DRUGS (2)
  1. SYNAGIS [Suspect]
     Active Substance: PALIVIZUMAB
     Dosage: UNKNOWN DOSE
     Route: 030
     Dates: end: 20191230
  2. SYNAGIS [Suspect]
     Active Substance: PALIVIZUMAB
     Dosage: UNKNOWN DOSE
     Route: 030
     Dates: start: 20200205

REACTIONS (2)
  - Upper respiratory tract infection [Unknown]
  - Inappropriate schedule of product administration [Unknown]

NARRATIVE: CASE EVENT DATE: 20191230
